FAERS Safety Report 6691496-3 (Version None)
Quarter: 2010Q2

REPORT INFORMATION
  Report Type: 
  Country: None (occurrence: None)
  Receive Date: 20100422
  Receipt Date: 20100414
  Transmission Date: 20101027
  Serious: Yes (Death)
  Sender: FDA-Public Use
  Company Number: JP-EISAI INC.-E3810-02860-SPO-JP

PATIENT
  Age: 68 Year
  Sex: Male

DRUGS (19)
  1. PARIET (RABEPRAZOLE) [Suspect]
     Indication: REFLUX OESOPHAGITIS
     Route: 048
     Dates: start: 20090313, end: 20090317
  2. GASMOTIN [Suspect]
     Indication: REFLUX OESOPHAGITIS
     Route: 048
     Dates: start: 20090313, end: 20090317
  3. HORIZON [Suspect]
  4. WARFARIN SODIUM [Concomitant]
     Indication: ATRIAL FIBRILLATION
     Route: 048
     Dates: end: 20090317
  5. NU-LOTAN [Concomitant]
     Route: 048
     Dates: end: 20090317
  6. LUPRAC [Concomitant]
     Route: 048
     Dates: end: 20090317
  7. DIGOXIN [Concomitant]
     Route: 048
     Dates: end: 20090317
  8. ALLOPURINOL [Concomitant]
     Route: 048
     Dates: end: 20090317
  9. AMARYL [Concomitant]
     Route: 048
     Dates: end: 20090317
  10. UNIPHYL LA [Concomitant]
     Route: 048
     Dates: end: 20090317
  11. ZETIA [Concomitant]
     Route: 048
     Dates: end: 20090317
  12. RENIVACE [Concomitant]
     Route: 048
     Dates: end: 20090317
  13. BASEN OD [Concomitant]
     Route: 048
     Dates: end: 20090317
  14. ITOROL [Concomitant]
     Route: 048
     Dates: end: 20090317
  15. SOLYUGEN G [Concomitant]
     Route: 042
  16. KN-1A [Concomitant]
     Route: 042
  17. RIMEFA 3B [Concomitant]
     Route: 042
  18. KN-4A [Concomitant]
     Route: 042
  19. ALINAMIN-F [Concomitant]

REACTIONS (3)
  - HYPERKALAEMIA [None]
  - JAUNDICE [None]
  - LIVER FUNCTION TEST ABNORMAL [None]
